FAERS Safety Report 8600382-0 (Version None)
Quarter: 2012Q3

REPORT INFORMATION
  Report Type: 
  Country: None (occurrence: None)
  Receive Date: 20120817
  Receipt Date: 20120808
  Transmission Date: 20120928
  Serious: No
  Sender: FDA-Public Use
  Company Number: US-PFIZER INC-2011283352

PATIENT
  Age: 60 Year
  Sex: Male
  Weight: 89.342 kg

DRUGS (2)
  1. OFLOXACIN [Concomitant]
     Dosage: UNK
     Route: 047
  2. LATANOPROST [Suspect]
     Indication: INTRAOCULAR PRESSURE TEST ABNORMAL
     Dosage: 1 GTT IN EACH EYE, 1X/DAY (AT NIGHT)
     Route: 047
     Dates: start: 20080801

REACTIONS (1)
  - BLOOD CHOLESTEROL INCREASED [None]
